FAERS Safety Report 16398371 (Version 1)
Quarter: 2019Q2

REPORT INFORMATION
  Report Type: Spontaneous
  Country: US (occurrence: US)
  Receive Date: 20190606
  Receipt Date: 20190606
  Transmission Date: 20190711
  Serious: No
  Sender: FDA-Public Use
  Company Number: US-BAUSCH-BL-2019-015781

PATIENT
  Sex: Female

DRUGS (1)
  1. LATANOPROST OPHTHALMIC SOLUTION 0.005% [Suspect]
     Active Substance: LATANOPROST
     Indication: GLAUCOMA
     Dosage: IN EVENING
     Route: 047
     Dates: end: 201905

REACTIONS (3)
  - Eye disorder [Not Recovered/Not Resolved]
  - Therapy cessation [Unknown]
  - Product dropper issue [Unknown]

NARRATIVE: CASE EVENT DATE: 201905
